FAERS Safety Report 4498321-X (Version None)
Quarter: 2004Q4

REPORT INFORMATION
  Report Type: 
  Country: None (occurrence: None)
  Receive Date: 20041109
  Receipt Date: 20041109
  Transmission Date: 20050328
  Serious: Yes (Hospitalization)
  Sender: FDA-Public Use
  Company Number: None

PATIENT
  Sex: Female

DRUGS (3)
  1. HUMIRA [Suspect]
     Indication: RHEUMATOID ARTHRITIS
     Dosage: 40 MG Q 2 WK
     Dates: start: 20040402, end: 20041104
  2. METHOTREXATE [Concomitant]
  3. LEUCOVORIN [Concomitant]

REACTIONS (3)
  - ATAXIA [None]
  - DEMYELINATION [None]
  - DIPLOPIA [None]
